FAERS Safety Report 9115616 (Version 1)
Quarter: 2013Q1

REPORT INFORMATION
  Report Type: Spontaneous
  Country: US (occurrence: US)
  Receive Date: 20130225
  Receipt Date: 20130225
  Transmission Date: 20140127
  Serious: No
  Sender: FDA-Public Use
  Company Number: US-BRISTOL-MYERS SQUIBB COMPANY-16405425

PATIENT
  Age: 44 Year
  Sex: Female
  Weight: 74.83 kg

DRUGS (1)
  1. KENALOG [Suspect]
     Indication: CARPAL TUNNEL SYNDROME
     Dosage: 2ND INJ ON 07SEP11
     Dates: start: 201108

REACTIONS (2)
  - Menorrhagia [Not Recovered/Not Resolved]
  - Hair growth abnormal [Unknown]
